FAERS Safety Report 15535967 (Version 2)
Quarter: 2018Q4

REPORT INFORMATION
  Report Type: Report from Study
  Country: GB (occurrence: GB)
  Receive Date: 20181022
  Receipt Date: 20181101
  Transmission Date: 20190205
  Serious: No
  Sender: FDA-Public Use
  Company Number: GB-IPSEN BIOPHARMACEUTICALS, INC.-2018-15815

PATIENT
  Age: 6 Year
  Sex: Male

DRUGS (2)
  1. DYSPORT [Suspect]
     Active Substance: ABOBOTULINUMTOXINA
     Dosage: RIGHT LOWER EXTREMITY MEDIAL HAMSTRING AND MEDIAL GASTRO.
     Route: 030
     Dates: start: 20180914, end: 20180914
  2. DYSPORT [Suspect]
     Active Substance: ABOBOTULINUMTOXINA
     Indication: MUSCLE SPASTICITY
     Dosage: RIGHT LOWER EXTREMITY MEDIAL HAMSTRING AND MEDIAL GASTRO.
     Route: 030
     Dates: start: 20180430, end: 20180430

REACTIONS (1)
  - Fibula fracture [Recovered/Resolved]

NARRATIVE: CASE EVENT DATE: 20180803
